FAERS Safety Report 8537552-6 (Version None)
Quarter: 2012Q3

REPORT INFORMATION
  Report Type: 
  Country: None (occurrence: None)
  Receive Date: 20120725
  Receipt Date: 20120718
  Transmission Date: 20120928
  Serious: Yes (Hospitalization)
  Sender: FDA-Public Use
  Company Number: US-US-EMD SERONO, INC.-7028022

PATIENT
  Sex: Female
  Weight: 100 kg

DRUGS (6)
  1. ZOLOFT [Concomitant]
     Indication: DEPRESSION
     Dates: start: 20080426
  2. LYRICA [Concomitant]
     Indication: FIBROMYALGIA
  3. TRAMADOL HYDROCHLORIDE [Concomitant]
     Dates: start: 20090719
  4. REBIF [Suspect]
     Indication: MULTIPLE SCLEROSIS
     Dates: start: 20060101
  5. LAMICTAL [Concomitant]
     Indication: DEPRESSED MOOD
     Dates: start: 20091026
  6. ZANAFLEX [Concomitant]
     Indication: MUSCLE SPASMS
     Dates: start: 20090619

REACTIONS (4)
  - ALCOHOL ABUSE [None]
  - SUICIDAL BEHAVIOUR [None]
  - COLITIS [None]
  - DEPRESSION [None]
